FAERS Safety Report 22040617 (Version 6)
Quarter: 2023Q2

REPORT INFORMATION
  Report Type: Spontaneous
  Country: US (occurrence: US)
  Receive Date: 20230227
  Receipt Date: 20230517
  Transmission Date: 20230721
  Serious: Yes (Other)
  Sender: FDA-Public Use
  Company Number: US-PFIZER INC-202300072059

PATIENT
  Age: 63 Year
  Sex: Male
  Weight: 79.3 kg

DRUGS (3)
  1. NICOTROL [Suspect]
     Active Substance: NICOTINE
     Indication: Smoking cessation therapy
     Dosage: UNK, DAILY
  2. MUPIROCIN [Concomitant]
     Active Substance: MUPIROCIN
     Dosage: UNK
  3. HYDROCORTISONE [Concomitant]
     Active Substance: HYDROCORTISONE
     Dosage: 2.5 %

REACTIONS (7)
  - Drug dependence [Unknown]
  - Mental disorder [Unknown]
  - Stress [Unknown]
  - Sinus headache [Unknown]
  - Sinusitis [Unknown]
  - Anaemia [Unknown]
  - Prescription drug used without a prescription [Unknown]
